FAERS Safety Report 6590175-0 (Version None)
Quarter: 2010Q1

REPORT INFORMATION
  Report Type: 
  Country: None (occurrence: None)
  Receive Date: 20100219
  Receipt Date: 20100215
  Transmission Date: 20100710
  Serious: Yes (Hospitalization)
  Sender: FDA-Public Use
  Company Number: US-BRISTOL-MYERS SQUIBB COMPANY-14977789

PATIENT
  Age: 51 Year
  Sex: Male
  Weight: 60 kg

DRUGS (4)
  1. ERBITUX [Suspect]
     Indication: NON-SMALL CELL LUNG CANCER
     Dosage: COURSE-1
     Dates: start: 20091116
  2. TAXOL [Suspect]
     Indication: NON-SMALL CELL LUNG CANCER
     Dosage: COURSE-1; END DATE-28DEC2009
     Dates: start: 20091123
  3. CARBOPLATIN [Suspect]
     Indication: NON-SMALL CELL LUNG CANCER
     Dosage: COURSE-1; END DATE-28DEC2009
     Dates: start: 20091123
  4. RADIATION THERAPY [Suspect]
     Indication: NON-SMALL CELL LUNG CANCER
     Dosage: 1DF- 60 GY; LAST DATE-11JAN2010; NO OF FRACTION-30; ELAPSED DAYS-49
     Dates: start: 20091116

REACTIONS (4)
  - DEHYDRATION [None]
  - PNEUMONIA [None]
  - PULMONARY HAEMORRHAGE [None]
  - WEIGHT DECREASED [None]
